FAERS Safety Report 19359893 (Version 1)
Quarter: 2021Q2

REPORT INFORMATION
  Report Type: Report from Study
  Country: CO (occurrence: CO)
  Receive Date: 20210601
  Receipt Date: 20210601
  Transmission Date: 20210717
  Serious: Yes (Other)
  Sender: FDA-Public Use
  Company Number: PHHY2018CO001290

PATIENT
  Sex: Female
  Weight: 60 kg

DRUGS (2)
  1. EXEMESTANE. [Suspect]
     Active Substance: EXEMESTANE
     Indication: PRODUCT USED FOR UNKNOWN INDICATION
     Dosage: UNK
     Route: 065
  2. AFINITOR [Suspect]
     Active Substance: EVEROLIMUS
     Indication: BREAST CANCER
     Dosage: 10 MG, QD
     Route: 048
     Dates: start: 20160509

REACTIONS (9)
  - Skin discolouration [Unknown]
  - Gastritis [Unknown]
  - Postoperative wound complication [Unknown]
  - Weight decreased [Unknown]
  - Sinusitis [Unknown]
  - Hypersensitivity [Unknown]
  - Influenza [Unknown]
  - Abdominal hernia [Unknown]
  - Nasal oedema [Unknown]
